FAERS Safety Report 6318767-4 (Version None)
Quarter: 2009Q3

REPORT INFORMATION
  Report Type: 
  Country: None (occurrence: None)
  Receive Date: 20090821
  Receipt Date: 20090811
  Transmission Date: 20100115
  Serious: Yes (Hospitalization)
  Sender: FDA-Public Use
  Company Number: US-ABBOTT-09P-163-0590556-00

PATIENT
  Sex: Female

DRUGS (1)
  1. HUMIRA [Suspect]
     Indication: PSORIATIC ARTHROPATHY
     Dates: start: 20090730

REACTIONS (6)
  - CHEST PAIN [None]
  - CHOKING [None]
  - FUNGAL OESOPHAGITIS [None]
  - OROPHARYNGEAL DISCOMFORT [None]
  - OROPHARYNGITIS FUNGAL [None]
  - THROAT IRRITATION [None]
